FAERS Safety Report 8839253 (Version 2)
Quarter: 2012Q4

REPORT INFORMATION
  Report Type: Report from Study
  Country: CA (occurrence: CA)
  Receive Date: 20121015
  Receipt Date: 20121123
  Transmission Date: 20130627
  Serious: Yes (Hospitalization)
  Sender: FDA-Public Use
  Company Number: CA-JNJFOC-20121003046

PATIENT
  Age: 56 Year
  Sex: Male
  Weight: 125.5 kg

DRUGS (1)
  1. REMICADE [Suspect]
     Indication: ANKYLOSING SPONDYLITIS
     Route: 042
     Dates: start: 20060101

REACTIONS (2)
  - Knee arthroplasty [Unknown]
  - Arthralgia [Recovered/Resolved]
